FAERS Safety Report 9991523 (Version 2)
Quarter: 2014Q1

REPORT INFORMATION
  Report Type: Spontaneous
  Country: US (occurrence: US)
  Receive Date: 20140310
  Receipt Date: 20140317
  Transmission Date: 20141002
  Serious: Yes (Other)
  Sender: FDA-Public Use
  Company Number: US-BAYER-2014-032466

PATIENT
  Age: 29 Year
  Sex: Female
  Weight: 65.76 kg

DRUGS (5)
  1. MIRENA [Suspect]
     Indication: CONTRACEPTION
     Dosage: 20 MCG/24HR, CONT
     Route: 015
     Dates: start: 20110505, end: 20120730
  2. SINGULAIR [Concomitant]
     Indication: MULTIPLE ALLERGIES
     Route: 048
  3. ALLEGRA [Concomitant]
     Indication: MULTIPLE ALLERGIES
     Route: 048
  4. NEXIUM [Concomitant]
     Indication: GASTROOESOPHAGEAL REFLUX DISEASE
     Route: 048
  5. CELEXA [Concomitant]
     Route: 048

REACTIONS (7)
  - Uterine perforation [None]
  - Haemorrhagic ovarian cyst [None]
  - Abdominal pain [None]
  - Device issue [None]
  - Device dislocation [None]
  - Injury [None]
  - Emotional distress [None]
